FAERS Safety Report 7935339-6 (Version None)
Quarter: 2011Q4

REPORT INFORMATION
  Report Type: 
  Country: None (occurrence: None)
  Receive Date: 20111122
  Receipt Date: 20111116
  Transmission Date: 20120403
  Serious: Yes (Other)
  Sender: FDA-Public Use
  Company Number: US-ASTRAZENECA-2011SE69715

PATIENT
  Sex: Male

DRUGS (1)
  1. PULMICORT [Suspect]
     Dosage: 0.5 MG/2 ML
     Route: 055

REACTIONS (2)
  - LUNG NEOPLASM MALIGNANT [None]
  - OFF LABEL USE [None]
